FAERS Safety Report 9383563 (Version 3)
Quarter: 2013Q3

REPORT INFORMATION
  Report Type: Spontaneous
  Country: DE (occurrence: DE)
  Receive Date: 20130704
  Receipt Date: 20130805
  Transmission Date: 20140515
  Serious: Yes (Other)
  Sender: FDA-Public Use
  Company Number: DE-JNJFOC-20130616829

PATIENT
  Sex: Male

DRUGS (4)
  1. ZYTIGA [Suspect]
     Indication: PROSTATE CANCER METASTATIC
     Dosage: 250MGX4 TABLETS=1000MG
     Route: 048
  2. PREDNISON [Concomitant]
     Route: 065
  3. FENTANYL TRANSDERMAL SYSTEM [Concomitant]
     Route: 062
  4. OXAZEPAM [Concomitant]
     Dosage: AS NEEDED
     Route: 065

REACTIONS (2)
  - Hypokalaemia [Recovered/Resolved]
  - Disease progression [Recovered/Resolved]
